FAERS Safety Report 9059802 (Version 1)
Quarter: 2013Q1

REPORT INFORMATION
  Report Type: Spontaneous
  Country: US (occurrence: None)
  Receive Date: 20130206
  Receipt Date: 20130206
  Transmission Date: 20140127
  Serious: No
  Sender: FDA-Public Use
  Company Number: None

PATIENT
  Age: 50 Year
  Sex: Female
  Weight: 71.8 kg

DRUGS (1)
  1. TICAGRELOR [Suspect]
     Dosage: Q12
     Route: 048
     Dates: start: 20120925

REACTIONS (2)
  - Bradycardia [None]
  - Drug dose omission [None]
